FAERS Safety Report 18547723 (Version 1)
Quarter: 2020Q4

REPORT INFORMATION
  Report Type: Spontaneous
  Country: MY (occurrence: MY)
  Receive Date: 20201126
  Receipt Date: 20201126
  Transmission Date: 20210114
  Serious: Yes (Other)
  Sender: FDA-Public Use
  Company Number: MY-ROCHE-2720802

PATIENT

DRUGS (1)
  1. ATEZOLIZUMAB. [Suspect]
     Active Substance: ATEZOLIZUMAB
     Indication: NON-SMALL CELL LUNG CANCER
     Route: 042

REACTIONS (4)
  - Recurrent cancer [Unknown]
  - Skin toxicity [Recovered/Resolved]
  - Off label use [Unknown]
  - Intentional product use issue [Unknown]
